FAERS Safety Report 14638946 (Version 2)
Quarter: 2018Q1

REPORT INFORMATION
  Report Type: Spontaneous
  Country: US (occurrence: US)
  Receive Date: 20180315
  Receipt Date: 20180327
  Transmission Date: 20180509
  Serious: No
  Sender: FDA-Public Use
  Company Number: US-009507513-1803USA006161

PATIENT
  Sex: Female

DRUGS (1)
  1. NEXPLANON [Suspect]
     Active Substance: ETONOGESTREL
     Indication: INTRA-UTERINE CONTRACEPTIVE DEVICE INSERTION
     Dosage: FREQUENCY:ONCE FOR 5 YEARS
     Route: 059
     Dates: start: 20160715

REACTIONS (1)
  - Vaginal haemorrhage [Unknown]
